FAERS Safety Report 17549889 (Version 6)
Quarter: 2021Q1

REPORT INFORMATION
  Report Type: Spontaneous
  Country: US (occurrence: US)
  Receive Date: 20200317
  Receipt Date: 20210122
  Transmission Date: 20210419
  Serious: Yes (Other)
  Sender: FDA-Public Use
  Company Number: US-PFIZER INC-2020111219

PATIENT
  Age: 66 Year
  Sex: Female

DRUGS (5)
  1. METHOTREXATE. [Concomitant]
     Active Substance: METHOTREXATE
     Dosage: UNK
  2. PREDNISONE. [Concomitant]
     Active Substance: PREDNISONE
     Dosage: UNK
  3. XELJANZ XR [Suspect]
     Active Substance: TOFACITINIB CITRATE
     Dosage: 11 MG, 1X/DAY (ONCE DAILY)
     Route: 048
  4. PLAQUENIL [HYDROXYCHLOROQUINE PHOSPHATE] [Concomitant]
     Active Substance: HYDROXYCHLOROQUINE DIPHOSPHATE
     Dosage: UNK
  5. XELJANZ XR [Suspect]
     Active Substance: TOFACITINIB CITRATE
     Indication: RHEUMATOID ARTHRITIS
     Dosage: 11 MG, DAILY
     Route: 048
     Dates: start: 20200131, end: 20200425

REACTIONS (14)
  - Blister [Unknown]
  - Depressed mood [Unknown]
  - Musculoskeletal stiffness [Not Recovered/Not Resolved]
  - Breast pain [Unknown]
  - Pain [Unknown]
  - Feeling abnormal [Unknown]
  - Back pain [Unknown]
  - Condition aggravated [Unknown]
  - Post herpetic neuralgia [Unknown]
  - Drug ineffective [Unknown]
  - Mastitis [Unknown]
  - Arthralgia [Not Recovered/Not Resolved]
  - Herpes zoster [Recovered/Resolved]
  - Axillary pain [Unknown]

NARRATIVE: CASE EVENT DATE: 2020
